FAERS Safety Report 5033274-7 (Version None)
Quarter: 2006Q2

REPORT INFORMATION
  Report Type: 
  Country: None (occurrence: None)
  Receive Date: 20060623
  Receipt Date: 20050203
  Transmission Date: 20061013
  Serious: Yes (Other)
  Sender: FDA-Public Use
  Company Number: PHNU2005DE00819

PATIENT
  Age: 65 Year
  Sex: Female

DRUGS (2)
  1. AREDIA [Suspect]
     Indication: PLASMACYTOMA
     Dosage: 90 MG, QMO
     Route: 042
     Dates: start: 20010501
  2. PREDNISOLONE [Concomitant]
     Dosage: 10MG/DAY
     Route: 048

REACTIONS (12)
  - ACTINOMYCOSIS [None]
  - BIOPSY BONE ABNORMAL [None]
  - BONE DEBRIDEMENT [None]
  - BONE DISORDER [None]
  - CHRONIC SINUSITIS [None]
  - GINGIVAL DISORDER [None]
  - INFLAMMATION [None]
  - OSTEOMYELITIS [None]
  - OSTEONECROSIS [None]
  - PRIMARY SEQUESTRUM [None]
  - SEQUESTRECTOMY [None]
  - TOOTH EXTRACTION [None]
